FAERS Safety Report 10354131 (Version 2)
Quarter: 2014Q3

REPORT INFORMATION
  Report Type: Spontaneous
  Country: JP (occurrence: JP)
  Receive Date: 20140731
  Receipt Date: 20140910
  Transmission Date: 20150326
  Serious: Yes (Other)
  Sender: FDA-Public Use
  Company Number: PHHY2014JP093390

PATIENT
  Sex: Female

DRUGS (3)
  1. SANDOSTATIN [Suspect]
     Active Substance: OCTREOTIDE ACETATE
     Dosage: 16 UG/KG/DAY UNK
     Route: 058
  2. SANDOSTATIN [Suspect]
     Active Substance: OCTREOTIDE ACETATE
     Indication: HYPERINSULINISM
     Dosage: 17UG/KG/DAY
     Route: 058
  3. GLUCOSE [Concomitant]
     Active Substance: DEXTROSE
     Dosage: 16 MG/KG/MIN
     Route: 042

REACTIONS (3)
  - Gene mutation [Unknown]
  - Blood growth hormone decreased [Recovered/Resolved]
  - Growth retardation [Recovered/Resolved]
